FAERS Safety Report 10149156 (Version 1)
Quarter: 2014Q2

REPORT INFORMATION
  Report Type: Spontaneous
  Country: US (occurrence: None)
  Receive Date: 20140501
  Receipt Date: 20140501
  Transmission Date: 20141212
  Serious: Yes (Hospitalization)
  Sender: FDA-Public Use
  Company Number: None

PATIENT
  Age: 87 Year
  Sex: Female

DRUGS (9)
  1. HEPARIN [Suspect]
     Indication: ANTICOAGULANT THERAPY
     Route: 042
     Dates: start: 20130210, end: 20130211
  2. ASPIRIN [Concomitant]
  3. LANSOPRAZOLE [Concomitant]
  4. LEVOTHYROXINE [Concomitant]
  5. LISINOPRIL [Concomitant]
  6. METOPROLOL [Concomitant]
  7. POTASSIUM CHLORIDE [Concomitant]
  8. TAMSULOSIN [Concomitant]
  9. NITROGLYCERIN [Concomitant]

REACTIONS (2)
  - Graft haemorrhage [None]
  - Activated partial thromboplastin time prolonged [None]
